FAERS Safety Report 21552031 (Version 1)
Quarter: 2022Q4

REPORT INFORMATION
  Report Type: Spontaneous
  Country: US (occurrence: US)
  Receive Date: 20221104
  Receipt Date: 20221104
  Transmission Date: 20230113
  Serious: Yes (Death, Hospitalization, Other)
  Sender: FDA-Public Use
  Company Number: US-APOTEX-2022AP014918

PATIENT
  Age: 32 Year
  Sex: Female

DRUGS (1)
  1. CLOBAZAM [Suspect]
     Active Substance: CLOBAZAM
     Indication: Seizure
     Dosage: 80 MILLIGRAM, Q.H.S. (PRESCRIBED 80 MG TO TAKE NIGHTLY)
     Route: 065

REACTIONS (17)
  - Cardiac arrest [Fatal]
  - Respiratory arrest [Fatal]
  - Pulmonary embolism [Fatal]
  - Pneumonia necrotising [Fatal]
  - Apnoea [Fatal]
  - Bradycardia [Fatal]
  - Brain oedema [Fatal]
  - Brain herniation [Fatal]
  - Unresponsive to stimuli [Fatal]
  - Brain injury [Fatal]
  - Toxicity to various agents [Fatal]
  - Intentional overdose [Fatal]
  - Bundle branch block right [Fatal]
  - Hyponatraemia [Fatal]
  - Cyanosis [Fatal]
  - Self-injurious ideation [Fatal]
  - Drug level increased [Fatal]

NARRATIVE: CASE EVENT DATE: 20210401
